FAERS Safety Report 6405822-3 (Version None)
Quarter: 2009Q4

REPORT INFORMATION
  Report Type: 
  Country: None (occurrence: None)
  Receive Date: 20091019
  Receipt Date: 20091012
  Transmission Date: 20100525
  Serious: Yes (Hospitalization, Other)
  Sender: FDA-Public Use
  Company Number: US-MERCK-0805USA00907

PATIENT
  Age: 71 Year
  Sex: Female

DRUGS (13)
  1. FOSAMAX [Suspect]
     Indication: OSTEOPOROSIS
     Route: 048
     Dates: start: 19960101, end: 20060101
  2. FOSAMAX [Suspect]
     Route: 048
     Dates: start: 20020811, end: 20030501
  3. FOSAMAX [Suspect]
     Route: 048
     Dates: end: 20051201
  4. CARTIA XT [Concomitant]
     Indication: CARDIAC DISORDER
     Route: 065
  5. CARTIA XT [Concomitant]
     Indication: DIABETES MELLITUS
     Route: 065
  6. LIPITOR [Concomitant]
     Indication: CARDIAC DISORDER
     Route: 065
  7. LIPITOR [Concomitant]
     Indication: DIABETES MELLITUS
     Route: 065
  8. PLAVIX [Concomitant]
     Indication: CARDIAC DISORDER
     Route: 065
  9. PLAVIX [Concomitant]
     Indication: DIABETES MELLITUS
     Route: 065
  10. GLYBURIDE [Concomitant]
     Indication: DIABETES MELLITUS
     Route: 065
  11. GLYBURIDE [Concomitant]
     Indication: CARDIAC DISORDER
     Route: 065
  12. EVISTA [Suspect]
     Indication: CARDIAC DISORDER
     Route: 065
     Dates: start: 20060505
  13. EVISTA [Suspect]
     Indication: DIABETES MELLITUS
     Route: 065
     Dates: start: 20060505

REACTIONS (24)
  - AORTIC CALCIFICATION [None]
  - BASAL CELL CARCINOMA [None]
  - CATARACT [None]
  - CLAVICLE FRACTURE [None]
  - DIABETES MELLITUS INADEQUATE CONTROL [None]
  - ENDOMETRIAL CANCER [None]
  - HYPERTENSIVE HEART DISEASE [None]
  - INTERVERTEBRAL DISC DEGENERATION [None]
  - JAW DISORDER [None]
  - JOINT CREPITATION [None]
  - MITRAL VALVE INCOMPETENCE [None]
  - MITRAL VALVE PROLAPSE [None]
  - OSTEOMYELITIS [None]
  - OSTEONECROSIS [None]
  - OVARIAN CANCER [None]
  - PAIN [None]
  - RADICULOPATHY [None]
  - SINUS BRADYCARDIA [None]
  - SKIN LESION [None]
  - SPONDYLOLISTHESIS [None]
  - TOOTH ABSCESS [None]
  - TOOTH DISORDER [None]
  - TOOTH FRACTURE [None]
  - TRICUSPID VALVE INCOMPETENCE [None]
